FAERS Safety Report 11641775 (Version 1)
Quarter: 2015Q4

REPORT INFORMATION
  Report Type: Spontaneous
  Country: US (occurrence: US)
  Receive Date: 20151019
  Receipt Date: 20151019
  Transmission Date: 20160304
  Serious: No
  Sender: FDA-Public Use
  Company Number: US-BAYER-2015-443089

PATIENT
  Age: 82 Year
  Sex: Male

DRUGS (2)
  1. NEXAVAR [Suspect]
     Active Substance: SORAFENIB
     Indication: NEOPLASM MALIGNANT
     Dosage: 400 MG, BID (2 PILLS IN AM AND 2 PILLS PM)
     Route: 048
     Dates: start: 2013
  2. NEXAVAR [Suspect]
     Active Substance: SORAFENIB
     Indication: NEOPLASM MALIGNANT
     Dosage: 200 MG, BID (1 PILL AM AND 1 PILL PM)

REACTIONS (4)
  - Balance disorder [Not Recovered/Not Resolved]
  - Fear of falling [None]
  - Inappropriate schedule of drug administration [None]
  - Fatigue [Not Recovered/Not Resolved]
